FAERS Safety Report 5519851-5 (Version None)
Quarter: 2007Q4

REPORT INFORMATION
  Report Type: 
  Country: None (occurrence: None)
  Receive Date: 20071116
  Receipt Date: 20070913
  Transmission Date: 20080405
  Serious: No
  Sender: FDA-Public Use
  Company Number: A0682786A

PATIENT
  Age: 37 Year
  Sex: Male

DRUGS (2)
  1. COREG CR [Suspect]
     Dosage: 20MG IN THE MORNING
     Dates: start: 20070913
  2. MICARDIS HCT [Concomitant]

REACTIONS (4)
  - DYSPNOEA [None]
  - FEAR [None]
  - FEELING ABNORMAL [None]
  - FEELING HOT [None]
